FAERS Safety Report 15447899 (Version 1)
Quarter: 2018Q3

REPORT INFORMATION
  Report Type: Spontaneous
  Country: NL (occurrence: NL)
  Receive Date: 20180928
  Receipt Date: 20180928
  Transmission Date: 20181010
  Serious: Yes (Other)
  Sender: FDA-Public Use
  Company Number: PHHY2018NL103229

PATIENT
  Age: 46 Year
  Sex: Male

DRUGS (1)
  1. NILOTINIB [Suspect]
     Active Substance: NILOTINIB
     Indication: BLAST CRISIS IN MYELOGENOUS LEUKAEMIA
     Dosage: 400 MG, BID
     Route: 065

REACTIONS (4)
  - Headache [Recovered/Resolved]
  - Recurrent cancer [Recovered/Resolved]
  - Blast crisis in myelogenous leukaemia [Recovered/Resolved]
  - Blast crisis in myelogenous leukaemia [Recovered/Resolved]

NARRATIVE: CASE EVENT DATE: 201312
